FAERS Safety Report 20636776 (Version 3)
Quarter: 2022Q1

REPORT INFORMATION
  Report Type: Other
  Country: US (occurrence: None)
  Receive Date: 20220325
  Receipt Date: 20220331
  Transmission Date: 20220423
  Serious: No
  Sender: FDA-Public Use
  Company Number: US-ROCHE-3060768

PATIENT
  Age: 29 Year
  Sex: Female
  Weight: 70.370 kg

DRUGS (7)
  1. OCREVUS [Suspect]
     Active Substance: OCRELIZUMAB
     Indication: Relapsing-remitting multiple sclerosis
     Route: 042
     Dates: start: 202009
  2. DULOXETINE [Concomitant]
     Active Substance: DULOXETINE
     Dates: start: 2018
  3. MYRBETRIQ [Concomitant]
     Active Substance: MIRABEGRON
     Dates: start: 2019
  4. BACLOFEN [Concomitant]
     Active Substance: BACLOFEN
     Dates: start: 2019
  5. VESICARE [Concomitant]
     Active Substance: SOLIFENACIN SUCCINATE
     Dates: start: 2019
  6. MACROBID [Concomitant]
     Active Substance: NITROFURANTOIN\NITROFURANTOIN MONOHYDRATE
  7. MODERNA COVID-19 VACCINE [Concomitant]
     Active Substance: ELASOMERAN
     Dates: start: 202111

REACTIONS (3)
  - Urinary tract infection [Recovered/Resolved]
  - COVID-19 [Recovered/Resolved]
  - B-lymphocyte count decreased [Unknown]

NARRATIVE: CASE EVENT DATE: 20210701
